FAERS Safety Report 8315306-3 (Version None)
Quarter: 2012Q2

REPORT INFORMATION
  Report Type: 
  Country: None (occurrence: None)
  Receive Date: 20120426
  Receipt Date: 20120423
  Transmission Date: 20120825
  Serious: No
  Sender: FDA-Public Use
  Company Number: US-BAYER-2012-040738

PATIENT
  Age: 82 Year
  Sex: Female
  Weight: 49 kg

DRUGS (2)
  1. CELEBREX [Concomitant]
  2. ALEVE (CAPLET) [Suspect]
     Indication: PAIN
     Dosage: 2 TABLETS ONCE DAILY
     Route: 048
     Dates: start: 20120420, end: 20120423

REACTIONS (1)
  - DIARRHOEA [None]
